FAERS Safety Report 19362788 (Version 1)
Quarter: 2021Q2

REPORT INFORMATION
  Report Type: Spontaneous
  Country: FR (occurrence: FR)
  Receive Date: 20210602
  Receipt Date: 20210602
  Transmission Date: 20210717
  Serious: Yes (Hospitalization)
  Sender: FDA-Public Use
  Company Number: FR-009507513-2105FRA007323

PATIENT
  Age: 70 Year
  Sex: Female
  Weight: 61 kg

DRUGS (13)
  1. KARDEGIC [Concomitant]
     Active Substance: ASPIRIN DL-LYSINE
     Dosage: POWDER FOR ORAL SOLUTION IN SINGLE?DOSE SACHET
  2. VITAMIN D3 [Concomitant]
     Active Substance: CHOLECALCIFEROL
  3. LANSOPRAZOLE. [Concomitant]
     Active Substance: LANSOPRAZOLE
  4. ACIDE FOLIQUE [Concomitant]
     Active Substance: FOLIC ACID
  5. WELLVONE [Concomitant]
     Active Substance: ATOVAQUONE
     Indication: PNEUMOCYSTIS JIROVECII PNEUMONIA
     Route: 048
     Dates: start: 20210310
  6. PREDNISONE. [Concomitant]
     Active Substance: PREDNISONE
  7. IMETH [METHOTREXATE] [Concomitant]
     Active Substance: METHOTREXATE
  8. CODEINE [Concomitant]
     Active Substance: CODEINE
  9. POSACONAZOLE [Suspect]
     Active Substance: POSACONAZOLE
     Indication: ASPERGILLUS INFECTION
     Dosage: 300 MG, UNK
     Route: 048
     Dates: start: 20210310
  10. IRBESARTAN. [Concomitant]
     Active Substance: IRBESARTAN
  11. PARACETAMOL [Concomitant]
     Active Substance: ACETAMINOPHEN
  12. CALCIUM CARBONATE. [Concomitant]
     Active Substance: CALCIUM CARBONATE
  13. LEVOTHYROX [Concomitant]
     Active Substance: LEVOTHYROXINE

REACTIONS (3)
  - Hypertension [Recovering/Resolving]
  - Cardiac failure [Recovering/Resolving]
  - Hypokalaemia [Recovering/Resolving]

NARRATIVE: CASE EVENT DATE: 20210428
